FAERS Safety Report 7341304-2 (Version None)
Quarter: 2011Q1

REPORT INFORMATION
  Report Type: 
  Country: None (occurrence: None)
  Receive Date: 20110309
  Receipt Date: 20110303
  Transmission Date: 20110831
  Serious: Yes (Disabling)
  Sender: FDA-Public Use
  Company Number: JP-ABBOTT-11P-087-0708968-00

PATIENT
  Age: 31 Year
  Sex: Male

DRUGS (8)
  1. KALETRA [Suspect]
     Indication: HIV INFECTION
     Route: 048
     Dates: start: 20060112, end: 20070706
  2. KALETRA [Suspect]
     Indication: ANTIRETROVIRAL THERAPY
  3. EPIVIR [Suspect]
     Indication: HIV INFECTION
     Route: 048
     Dates: start: 20060112, end: 20070706
  4. ZERIT [Suspect]
     Indication: HIV INFECTION
     Route: 048
     Dates: start: 20060112, end: 20070727
  5. EPIVIR [Suspect]
     Indication: ANTIRETROVIRAL THERAPY
  6. VIREAD [Suspect]
     Indication: HIV INFECTION
     Route: 048
     Dates: start: 20060112, end: 20070706
  7. ZERIT [Suspect]
     Indication: ANTIRETROVIRAL THERAPY
  8. VIREAD [Suspect]
     Indication: ANTIRETROVIRAL THERAPY

REACTIONS (1)
  - LATENT AUTOIMMUNE DIABETES IN ADULTS [None]
